FAERS Safety Report 19296136 (Version 1)
Quarter: 2021Q2

REPORT INFORMATION
  Report Type: Spontaneous
  Country: US (occurrence: US)
  Receive Date: 20210524
  Receipt Date: 20210524
  Transmission Date: 20210717
  Serious: Yes (Hospitalization)
  Sender: FDA-Public Use
  Company Number: US-PERRIGO-21US006513

PATIENT
  Age: 68 Year
  Sex: Female

DRUGS (1)
  1. DOXYLAMINE SUCCINATE. [Suspect]
     Active Substance: DOXYLAMINE SUCCINATE
     Indication: ACCIDENTAL OVERDOSE
     Dosage: 500 MG, UNKNOWN
     Route: 048

REACTIONS (2)
  - Torsade de pointes [Recovered/Resolved]
  - Accidental overdose [Recovered/Resolved]
